FAERS Safety Report 20816540 (Version 1)
Quarter: 2022Q2

REPORT INFORMATION
  Report Type: Spontaneous
  Country: CA (occurrence: CA)
  Receive Date: 20220512
  Receipt Date: 20220512
  Transmission Date: 20220721
  Serious: Yes (Other)
  Sender: FDA-Public Use
  Company Number: CA-TEVA-2022-CA-2034109

PATIENT
  Age: 45 Year
  Sex: Female

DRUGS (2)
  1. FULVESTRANT [Suspect]
     Active Substance: FULVESTRANT
     Indication: Breast cancer metastatic
     Dosage: 500 MG, 2 INJECTIONS EVERY 28 DAYS
     Route: 065
  2. FULVESTRANT [Suspect]
     Active Substance: FULVESTRANT
     Dosage: 500MG WAS SPLIT INTO 4 INJECTIONS
     Route: 065

REACTIONS (2)
  - Injection site necrosis [Not Recovered/Not Resolved]
  - Injection site pain [Unknown]

NARRATIVE: CASE EVENT DATE: 20220101
